FAERS Safety Report 18270443 (Version 2)
Quarter: 2020Q3

REPORT INFORMATION
  Report Type: Spontaneous
  Country: FR (occurrence: FR)
  Receive Date: 20200915
  Receipt Date: 20200916
  Transmission Date: 20201103
  Serious: Yes (Life-Threatening, Other)
  Sender: FDA-Public Use
  Company Number: FR-PFIZER INC-2020354086

PATIENT
  Age: 59 Year
  Sex: Female
  Weight: 76 kg

DRUGS (8)
  1. LANSOPRAZOLE. [Suspect]
     Active Substance: LANSOPRAZOLE
     Dosage: UNK
     Route: 048
     Dates: start: 20200807, end: 20200807
  2. ESCITALOPRAM [Suspect]
     Active Substance: ESCITALOPRAM OXALATE
     Dosage: 13 DF (13 TABS OF 10 MG)
     Route: 048
     Dates: start: 20200807, end: 20200807
  3. LOXAPAC [LOXAPINE SUCCINATE] [Suspect]
     Active Substance: LOXAPINE SUCCINATE
     Dosage: 30 DF, SINGLE
     Route: 048
     Dates: start: 20200807, end: 20200807
  4. ZOPICLONE [Suspect]
     Active Substance: ZOPICLONE
     Dosage: 33 DF (33 TABS OF 0.5 MG)
     Route: 048
     Dates: start: 20200807, end: 20200807
  5. DOLIPRANE [Suspect]
     Active Substance: ACETAMINOPHEN
     Dosage: 14 DF, SINGLE
     Route: 048
     Dates: start: 20200807, end: 20200807
  6. SERESTA [Suspect]
     Active Substance: OXAZEPAM
     Dosage: 9 DF, SINGLE
     Route: 048
     Dates: start: 20200807, end: 20200807
  7. ALPRAZOLAM. [Suspect]
     Active Substance: ALPRAZOLAM
     Dosage: 33 DF (33 TABS OF 0.5MG)
     Route: 048
     Dates: start: 20200807, end: 20200807
  8. GLICLAZIDE [Suspect]
     Active Substance: GLICLAZIDE
     Dosage: UNK, UNSPECIFIED
     Route: 048
     Dates: start: 20200807, end: 20200807

REACTIONS (3)
  - Intentional overdose [Unknown]
  - Poisoning deliberate [Unknown]
  - Coma [Recovered/Resolved]

NARRATIVE: CASE EVENT DATE: 20200807
